FAERS Safety Report 4791106-6 (Version None)
Quarter: 2005Q4

REPORT INFORMATION
  Report Type: 
  Country: None (occurrence: None)
  Receive Date: 20051007
  Receipt Date: 20050930
  Transmission Date: 20060501
  Serious: Yes (Hospitalization)
  Sender: FDA-Public Use
  Company Number: US-KINGPHARMUSA00001-K200501276

PATIENT
  Age: 66 Year
  Sex: Male

DRUGS (5)
  1. ALTACE [Suspect]
     Dosage: 6.25 MG, QD
     Route: 048
     Dates: start: 20050701, end: 20050828
  2. INIPOMP [Suspect]
     Dosage: UNK, UNK
     Route: 048
  3. PLAVIX [Suspect]
     Route: 048
  4. ELISOR [Suspect]
     Route: 048
  5. KREDEX [Suspect]
     Route: 048

REACTIONS (2)
  - ANAEMIA [None]
  - GASTRITIS EROSIVE [None]
